FAERS Safety Report 25326048 (Version 1)
Quarter: 2025Q2

REPORT INFORMATION
  Report Type: Spontaneous
  Country: US (occurrence: US)
  Receive Date: 20250516
  Receipt Date: 20250516
  Transmission Date: 20250716
  Serious: No
  Sender: GALDERMA
  Company Number: US-GALDERMA-US2025004697

PATIENT

DRUGS (2)
  1. NEMLUVIO [Suspect]
     Active Substance: NEMOLIZUMAB-ILTO
     Indication: Neurodermatitis
     Route: 058
     Dates: start: 202411, end: 202411
  2. CLOBETASOL PROPIONATE [Suspect]
     Active Substance: CLOBETASOL PROPIONATE
     Indication: Product used for unknown indication
     Route: 065

REACTIONS (1)
  - Alopecia [Unknown]
